FAERS Safety Report 12557573 (Version 1)
Quarter: 2016Q3

REPORT INFORMATION
  Report Type: Spontaneous
  Country: JP (occurrence: JP)
  Receive Date: 20160714
  Receipt Date: 20160714
  Transmission Date: 20161109
  Serious: Yes (Other)
  Sender: FDA-Public Use
  Company Number: JP-PFIZER INC-2016335916

PATIENT

DRUGS (3)
  1. LYRICA [Suspect]
     Active Substance: PREGABALIN
     Route: 048
  2. GABAPEN [Suspect]
     Active Substance: GABAPENTIN
     Route: 048
  3. NEUROTROPIN [Concomitant]
     Active Substance: NEUROTROPIN
     Route: 048

REACTIONS (3)
  - Pneumonia [Unknown]
  - Blood creatine phosphokinase increased [Unknown]
  - Rhabdomyolysis [Unknown]
